FAERS Safety Report 16370071 (Version 3)
Quarter: 2019Q2

REPORT INFORMATION
  Report Type: Spontaneous
  Country: US (occurrence: US)
  Receive Date: 20190530
  Receipt Date: 20190611
  Transmission Date: 20190711
  Serious: No
  Sender: FDA-Public Use
  Company Number: US-009507513-1905USA012805

PATIENT
  Age: 53 Year
  Sex: Male

DRUGS (6)
  1. TEMODAR [Suspect]
     Active Substance: TEMOZOLOMIDE
     Dosage: 140 MILLIGRAM, QD
     Route: 048
     Dates: start: 201905
  2. DOCUSATE SODIUM. [Concomitant]
     Active Substance: DOCUSATE SODIUM
  3. HYDROCHLORTHIAZID [Concomitant]
     Active Substance: HYDROCHLOROTHIAZIDE
  4. TEMODAR [Suspect]
     Active Substance: TEMOZOLOMIDE
     Indication: CEREBRAL DISORDER
     Dosage: 140 MILLIGRAM, QD
     Route: 048
     Dates: start: 201905
  5. XARELTO [Concomitant]
     Active Substance: RIVAROXABAN
  6. SENNA NATURAL VEGETABLE LAXATIVE [Concomitant]
     Active Substance: SENNOSIDES

REACTIONS (1)
  - Blood test abnormal [Unknown]

NARRATIVE: CASE EVENT DATE: 201905
